FAERS Safety Report 4969028-7 (Version None)
Quarter: 2006Q2

REPORT INFORMATION
  Report Type: 
  Country: None (occurrence: None)
  Receive Date: 20060411
  Receipt Date: 20060403
  Transmission Date: 20061013
  Serious: Yes (Hospitalization)
  Sender: FDA-Public Use
  Company Number: US-MERCK-0604USA00206

PATIENT
  Age: 91 Year
  Sex: Female

DRUGS (2)
  1. FOSAMAX [Suspect]
     Indication: OSTEOPOROSIS
     Route: 048
     Dates: start: 20040101
  2. [THERAPY UNSPECIFIED] [Concomitant]
     Route: 065

REACTIONS (2)
  - BLOOD URINE PRESENT [None]
  - NEPHROLITHIASIS [None]
